FAERS Safety Report 24027932 (Version 3)
Quarter: 2024Q3

REPORT INFORMATION
  Report Type: Spontaneous
  Country: DE (occurrence: DE)
  Receive Date: 20240628
  Receipt Date: 20240822
  Transmission Date: 20241017
  Serious: Yes (Other)
  Sender: NOVARTIS
  Company Number: DE-002147023-NVSC2024DE130136

PATIENT
  Sex: Female
  Weight: 67 kg

DRUGS (2)
  1. COSENTYX [Suspect]
     Active Substance: SECUKINUMAB
     Indication: Psoriasis
     Dosage: 300 MG, QMO
     Route: 065
     Dates: start: 20240409, end: 20240528
  2. COSENTYX [Suspect]
     Active Substance: SECUKINUMAB
     Indication: Psoriatic arthropathy

REACTIONS (21)
  - Diverticulitis [Recovering/Resolving]
  - Drug ineffective [Recovering/Resolving]
  - Blepharitis [Not Recovered/Not Resolved]
  - Eye swelling [Not Recovered/Not Resolved]
  - Ocular hyperaemia [Not Recovered/Not Resolved]
  - Eye pain [Not Recovered/Not Resolved]
  - Visual impairment [Not Recovered/Not Resolved]
  - Lacrimal disorder [Not Recovered/Not Resolved]
  - Peripheral swelling [Recovered/Resolved]
  - Arthropathy [Unknown]
  - Fatigue [Not Recovered/Not Resolved]
  - Headache [Not Recovered/Not Resolved]
  - Nodule [Recovering/Resolving]
  - Liver function test abnormal [Not Recovered/Not Resolved]
  - Arthropod bite [Recovering/Resolving]
  - Gastrointestinal disorder [Unknown]
  - Meibomian gland dysfunction [Unknown]
  - Nodular rash [Recovering/Resolving]
  - Pruritus [Recovering/Resolving]
  - Hypoaesthesia [Not Recovered/Not Resolved]
  - Dizziness [Not Recovered/Not Resolved]

NARRATIVE: CASE EVENT DATE: 20240101
